FAERS Safety Report 7180232-2 (Version None)
Quarter: 2010Q4

REPORT INFORMATION
  Report Type: 
  Country: None (occurrence: None)
  Receive Date: 20101123
  Receipt Date: 20100825
  Transmission Date: 20110411
  Serious: No
  Sender: FDA-Public Use
  Company Number: 017854

PATIENT
  Sex: Female

DRUGS (1)
  1. CIMZIA [Suspect]
     Indication: RHEUMATOID ARTHRITIS
     Dosage: (200 MG 1X/4 WEEKS SUBCUTANEOUS)
     Route: 058
     Dates: start: 20100728

REACTIONS (2)
  - FATIGUE [None]
  - OEDEMA PERIPHERAL [None]
